FAERS Safety Report 12266974 (Version 2)
Quarter: 2016Q2

REPORT INFORMATION
  Report Type: Spontaneous
  Country: US (occurrence: US)
  Receive Date: 20160414
  Receipt Date: 20160421
  Transmission Date: 20160815
  Serious: No
  Sender: FDA-Public Use
  Company Number: US-PFIZER INC-2016168304

PATIENT
  Age: 46 Year
  Sex: Male
  Weight: 54 kg

DRUGS (2)
  1. VIAGRA [Suspect]
     Active Substance: SILDENAFIL CITRATE
     Dosage: 40 MG, 2X/DAY
  2. VIAGRA [Suspect]
     Active Substance: SILDENAFIL CITRATE
     Indication: ERECTILE DYSFUNCTION
     Dosage: 40 MG, DAILY
     Dates: start: 2011

REACTIONS (5)
  - Intentional product misuse [Unknown]
  - Penile pain [Not Recovered/Not Resolved]
  - Penis disorder [Unknown]
  - Skin discolouration [Unknown]
  - Erection increased [Unknown]
